FAERS Safety Report 23780216 (Version 1)
Quarter: 2024Q2

REPORT INFORMATION
  Report Type: Spontaneous
  Country: UA (occurrence: UA)
  Receive Date: 20240424
  Receipt Date: 20240424
  Transmission Date: 20240715
  Serious: Yes (Life-Threatening, Hospitalization, Other)
  Sender: FDA-Public Use
  Company Number: None

PATIENT
  Sex: Male

DRUGS (1)
  1. IBUPROFEN [Suspect]
     Active Substance: IBUPROFEN
     Indication: Respiratory tract infection
     Dosage: UNK (HIGH DOSES)
     Route: 064

REACTIONS (4)
  - Tricuspid valve incompetence [Recovered/Resolved]
  - Neonatal pulmonary hypertension [Recovered/Resolved]
  - Right ventricular hypertrophy [Recovered/Resolved]
  - Ductus arteriosus premature closure [Recovered/Resolved]
